FAERS Safety Report 6135633-8 (Version None)
Quarter: 2009Q1

REPORT INFORMATION
  Report Type: 
  Country: None (occurrence: None)
  Receive Date: 20090327
  Receipt Date: 20081209
  Transmission Date: 20090719
  Serious: Yes (Hospitalization)
  Sender: FDA-Public Use
  Company Number: US-ASTRAZENECA-2008UW27361

PATIENT
  Age: 24231 Day
  Sex: Male
  Weight: 77.1 kg

DRUGS (4)
  1. LISINOPRIL [Suspect]
     Indication: HYPERTENSION
     Route: 048
  2. LISINOPRIL [Suspect]
     Route: 048
     Dates: start: 20081107
  3. RAD001 PLUS BEVACIZUMAB [Suspect]
     Indication: METASTATIC MALIGNANT MELANOMA
     Dates: start: 20080926
  4. AVASTIN [Concomitant]
     Dates: start: 20080926

REACTIONS (2)
  - ANGIOEDEMA [None]
  - OROPHARYNGEAL SWELLING [None]
